FAERS Safety Report 4378261-7 (Version None)
Quarter: 2004Q2

REPORT INFORMATION
  Report Type: 
  Country: None (occurrence: None)
  Receive Date: 20040616
  Receipt Date: 20020724
  Transmission Date: 20050107
  Serious: Yes (Death, Hospitalization)
  Sender: FDA-Public Use
  Company Number: US-BRISTOL-MYERS SQUIBB COMPANY-11964202

PATIENT
  Age: 68 Year
  Sex: Male
  Weight: 85 kg

DRUGS (19)
  1. TAXOL [Suspect]
     Indication: NON-SMALL CELL LUNG CANCER
     Route: 042
     Dates: start: 20020709, end: 20020709
  2. CARBOPLATIN [Suspect]
     Indication: NON-SMALL CELL LUNG CANCER
     Route: 042
     Dates: start: 20020625, end: 20020625
  3. DEXAMETHASONE [Concomitant]
     Dates: start: 20020625, end: 20020709
  4. DIPHENHYDRAMINE HCL [Concomitant]
     Dates: start: 20020625, end: 20020709
  5. CIMETIDINE [Concomitant]
     Dates: start: 20020625, end: 20020709
  6. INDOMETHACIN [Concomitant]
     Indication: GOUT
     Route: 048
     Dates: start: 19990225, end: 20020720
  7. COLCHICINE [Concomitant]
     Indication: GOUT
     Route: 048
     Dates: start: 19980101, end: 20020722
  8. FOSINOPRIL SODIUM [Concomitant]
     Indication: HYPERTENSION
     Route: 048
     Dates: start: 20000126, end: 20020720
  9. GLYBURIDE [Concomitant]
     Indication: DIABETES MELLITUS
     Route: 048
     Dates: start: 19981118, end: 20020720
  10. ALBUTEROL [Concomitant]
     Indication: DYSPNOEA
     Route: 055
     Dates: start: 20020610
  11. GUAIFENESIN [Concomitant]
     Indication: COUGH
     Route: 048
     Dates: start: 20011029
  12. PERCOCET [Concomitant]
     Indication: PAIN
     Route: 048
     Dates: start: 20020523
  13. DOCUSATE SODIUM [Concomitant]
     Indication: CONSTIPATION
     Route: 048
     Dates: start: 20020603
  14. CLOTRIMAZOLE [Concomitant]
     Indication: LOCAL ANTIFUNGAL TREATMENT
     Route: 061
     Dates: start: 19990331
  15. SIMVASTATIN [Concomitant]
     Indication: HYPERCHOLESTEROLAEMIA
     Route: 048
     Dates: start: 20000726
  16. DILTIAZEM HCL [Concomitant]
     Indication: HYPERTENSION
     Route: 048
     Dates: start: 19991117, end: 20020725
  17. MEGESTROL [Concomitant]
     Indication: DECREASED APPETITE
     Route: 048
     Dates: start: 20020702
  18. SIMETHICONE [Concomitant]
     Indication: FLATULENCE
     Route: 048
     Dates: start: 20020715, end: 20020723
  19. ENSURE [Concomitant]
     Indication: NUTRITIONAL SUPPORT
     Route: 048
     Dates: start: 20020611

REACTIONS (13)
  - ANAEMIA [None]
  - BLOOD GLUCOSE INCREASED [None]
  - CARDIAC FAILURE CONGESTIVE [None]
  - CREPITATIONS [None]
  - DEATH [None]
  - DEHYDRATION [None]
  - DYSPNOEA [None]
  - HYPERKALAEMIA [None]
  - HYPOGLYCAEMIA [None]
  - PERICARDIAL EFFUSION [None]
  - RENAL FAILURE ACUTE [None]
  - TACHYCARDIA [None]
  - TUBULOINTERSTITIAL NEPHRITIS [None]
